FAERS Safety Report 8505764-3 (Version None)
Quarter: 2012Q3

REPORT INFORMATION
  Report Type: 
  Country: None (occurrence: None)
  Receive Date: 20120706
  Receipt Date: 20120706
  Transmission Date: 20120928
  Serious: No
  Sender: FDA-Public Use
  Company Number: None

PATIENT

DRUGS (1)
  1. LOVENOX ENOXAPARIN SODIUM 515949 SANOFI-AVENTIS US INJECTABLE 80 MG / [Suspect]
     Dosage: INJECTABLE 80 MG/0.8 ML PRE-FILLED SYRINGE

REACTIONS (2)
  - INJURY ASSOCIATED WITH DEVICE [None]
  - DEVICE FAILURE [None]
